FAERS Safety Report 6383966-2 (Version None)
Quarter: 2009Q4

REPORT INFORMATION
  Report Type: 
  Country: None (occurrence: None)
  Receive Date: 20091001
  Receipt Date: 20090928
  Transmission Date: 20100525
  Serious: Yes (Hospitalization, Other)
  Sender: FDA-Public Use
  Company Number: BR-ABBOTT-09P-020-0595037-00

PATIENT
  Sex: Female
  Weight: 50 kg

DRUGS (3)
  1. HUMIRA [Suspect]
     Indication: RHEUMATOID ARTHRITIS
     Route: 058
     Dates: start: 20080801
  2. METHOTREXATE [Concomitant]
     Indication: RHEUMATOID ARTHRITIS
     Route: 048
     Dates: end: 20090301
  3. IRON [Concomitant]
     Indication: ANAEMIA
     Route: 048
     Dates: end: 20090301

REACTIONS (11)
  - ANAEMIA [None]
  - BLOOD ALDOSTERONE DECREASED [None]
  - FALL [None]
  - MENORRHAGIA [None]
  - PIGMENTATION DISORDER [None]
  - POLYNEUROPATHY [None]
  - RASH MACULAR [None]
  - SENSATION OF HEAVINESS [None]
  - WEIGHT DECREASED [None]
  - WHITE BLOOD CELL COUNT DECREASED [None]
  - WOUND [None]
